FAERS Safety Report 19583461 (Version 2)
Quarter: 2021Q3

REPORT INFORMATION
  Report Type: Spontaneous
  Country: US (occurrence: US)
  Receive Date: 20210720
  Receipt Date: 20210723
  Transmission Date: 20211014
  Serious: Yes (Other)
  Sender: FDA-Public Use
  Company Number: US-SA-2021SA231788

PATIENT
  Age: 74 Year
  Sex: Female

DRUGS (2)
  1. LANTUS SOLOSTAR [Suspect]
     Active Substance: INSULIN GLARGINE
     Indication: TYPE 2 DIABETES MELLITUS
     Dosage: 104 IU, Q12H
     Route: 065
     Dates: start: 2011
  2. LANTUS SOLOSTAR [Suspect]
     Active Substance: INSULIN GLARGINE
     Dosage: 55 IU, Q12H
     Route: 065

REACTIONS (9)
  - Drug ineffective [Unknown]
  - Shock hypoglycaemic [Unknown]
  - Cerebrovascular accident [Unknown]
  - Erythema [Unknown]
  - Product prescribing issue [Unknown]
  - Hypoglycaemic unconsciousness [Unknown]
  - Visual impairment [Unknown]
  - Hyperhidrosis [Unknown]
  - Blood glucose increased [Unknown]

NARRATIVE: CASE EVENT DATE: 20210710
